FAERS Safety Report 14861136 (Version 1)
Quarter: 2018Q2

REPORT INFORMATION
  Report Type: Spontaneous
  Country: US (occurrence: US)
  Receive Date: 20180423
  Receipt Date: 20180423
  Transmission Date: 20180711
  Serious: Yes (Other)
  Sender: FDA-Public Use
  Company Number: None

PATIENT
  Age: 70 Year
  Sex: Female
  Weight: 61.23 kg

DRUGS (7)
  1. CALTRATE [Concomitant]
     Active Substance: CALCIUM CARBONATE
  2. CENTRUM SILVER [Concomitant]
     Active Substance: MINERALS\VITAMINS
  3. QUINAPRIL. [Concomitant]
     Active Substance: QUINAPRIL
  4. PROLIA [Suspect]
     Active Substance: DENOSUMAB
     Indication: OSTEOPOROSIS PROPHYLAXIS
     Dates: start: 20160928, end: 20170322
  5. CRESTOR [Concomitant]
     Active Substance: ROSUVASTATIN CALCIUM
  6. FISH OIL [Concomitant]
     Active Substance: FISH OIL
  7. RANITIDINE. [Concomitant]
     Active Substance: RANITIDINE

REACTIONS (6)
  - Back pain [None]
  - Rash [None]
  - Loss of personal independence in daily activities [None]
  - Cough [None]
  - Groin pain [None]
  - Flatulence [None]

NARRATIVE: CASE EVENT DATE: 20161120
